FAERS Safety Report 4361004-0 (Version None)
Quarter: 2004Q2

REPORT INFORMATION
  Report Type: 
  Country: None (occurrence: None)
  Receive Date: 20040517
  Receipt Date: 20040430
  Transmission Date: 20050107
  Serious: Yes (Hospitalization)
  Sender: FDA-Public Use
  Company Number: S04-SWI-02003-01

PATIENT
  Age: 54 Year
  Sex: Female

DRUGS (4)
  1. CITALOPRAM HYDROBROMIDE [Suspect]
     Indication: DEPRESSION
     Dosage: 100 MG QD PO
     Route: 048
     Dates: start: 20040310, end: 20040322
  2. CITALOPRAM HYDROBROMIDE [Suspect]
     Indication: DEPRESSION
     Dates: end: 20040310
  3. VALPROIC ACID [Suspect]
     Indication: BIPOLAR DISORDER
     Dosage: 2000 MG QD PO
     Route: 048
     Dates: start: 20040310, end: 20040322
  4. VALPROIC ACID [Suspect]
     Indication: BIPOLAR DISORDER
     Dates: end: 20040310

REACTIONS (14)
  - ANAEMIA [None]
  - APATHY [None]
  - ASTHENIA [None]
  - CHOLELITHIASIS [None]
  - DISORIENTATION [None]
  - GENERAL PHYSICAL HEALTH DETERIORATION [None]
  - HEPATIC STEATOSIS [None]
  - HEPATOCELLULAR DAMAGE [None]
  - HYPOCALCAEMIA [None]
  - HYPOCHOLESTEROLAEMIA [None]
  - HYPOVITAMINOSIS [None]
  - OVERDOSE [None]
  - PROTHROMBIN TIME PROLONGED [None]
  - SPLEEN DISORDER [None]
